FAERS Safety Report 7703315-4 (Version None)
Quarter: 2011Q3

REPORT INFORMATION
  Report Type: 
  Country: None (occurrence: None)
  Receive Date: 20110823
  Receipt Date: 20110811
  Transmission Date: 20111222
  Serious: No
  Sender: FDA-Public Use
  Company Number: CA-ELI_LILLY_AND_COMPANY-CA201108003707

PATIENT
  Sex: Male
  Weight: 77.551 kg

DRUGS (5)
  1. ZYPREXA [Suspect]
     Indication: SCHIZOPHRENIA, PARANOID TYPE
     Dosage: 15 MG, EACH EVENING
     Route: 048
  2. ZYPREXA [Suspect]
     Dosage: 10 MG, EACH EVENING
     Route: 048
  3. ZYPREXA [Suspect]
     Dosage: 25 MG, EACH EVENING
     Route: 048
  4. ZYPREXA [Suspect]
     Dosage: 5 MG, EACH EVENING
     Route: 048
  5. RISPERDAL CONSTA [Concomitant]

REACTIONS (10)
  - TYPE 2 DIABETES MELLITUS [None]
  - WHITE BLOOD CELL COUNT INCREASED [None]
  - HYPERLIPIDAEMIA [None]
  - OVERDOSE [None]
  - MYOPIA [None]
  - GINGIVITIS [None]
  - FUNGAL INFECTION [None]
  - KIDNEY INFECTION [None]
  - DENTAL CARIES [None]
  - METABOLIC SYNDROME [None]
